FAERS Safety Report 18998041 (Version 1)
Quarter: 2021Q1

REPORT INFORMATION
  Report Type: Spontaneous
  Country: DE (occurrence: DE)
  Receive Date: 20210311
  Receipt Date: 20210311
  Transmission Date: 20210420
  Serious: Yes (Other)
  Sender: FDA-Public Use
  Company Number: PHBS2005DE02310

PATIENT
  Age: 4 Year
  Sex: Male

DRUGS (2)
  1. OXCARBAZEPINE. [Suspect]
     Active Substance: OXCARBAZEPINE
     Indication: EPILEPSY
     Dosage: 05?25 MG/KG/DAILY
     Route: 065
  2. VALPROIC ACID. [Concomitant]
     Active Substance: VALPROIC ACID
     Indication: PRODUCT USED FOR UNKNOWN INDICATION
     Dosage: UNK
     Route: 065

REACTIONS (5)
  - Head titubation [Recovered/Resolved]
  - Drop attacks [Recovered/Resolved]
  - Myoclonus [Recovered/Resolved]
  - Myoclonic epilepsy [Recovered/Resolved]
  - Hypotonia [Recovered/Resolved]
